FAERS Safety Report 12261515 (Version 2)
Quarter: 2016Q2

REPORT INFORMATION
  Report Type: Report from Study
  Country: JP (occurrence: JP)
  Receive Date: 20160412
  Receipt Date: 20160504
  Transmission Date: 20160815
  Serious: Yes (Death, Life-Threatening, Hospitalization, Other)
  Sender: FDA-Public Use
  Company Number: JP-PFM-JP-2015-4756

PATIENT
  Age: 71 Year
  Sex: Male
  Weight: 64 kg

DRUGS (15)
  1. GRAN [Suspect]
     Active Substance: FILGRASTIM
     Dosage: 75 ?G UNK
     Route: 058
     Dates: start: 20100910, end: 20100912
  2. GRAN [Suspect]
     Active Substance: FILGRASTIM
     Dosage: 75 ?G UNK
     Route: 058
     Dates: start: 20101122, end: 20101126
  3. CALONAL [Concomitant]
     Active Substance: ACETAMINOPHEN
     Indication: PAIN
     Dosage: 400 MG, TID (3/DAY)
     Route: 048
     Dates: start: 201012
  4. NAVELBINE [Suspect]
     Active Substance: VINORELBINE TARTRATE
     Dosage: 42 MG ON DAY 1 AND DAY 8
     Route: 042
     Dates: start: 20101008, end: 20101115
  5. NAUZELIN [Concomitant]
     Active Substance: DOMPERIDONE
     Indication: NAUSEA
     Dosage: 20 MG, TID (3/DAY)
     Route: 048
     Dates: start: 20101104, end: 20101110
  6. CODEINE PHOSPHATE [Concomitant]
     Active Substance: CODEINE PHOSPHATE
     Indication: COUGH
     Dosage: 20 MG, TID (3/DAY)
     Dates: start: 20101228
  7. OXYCONTIN [Concomitant]
     Active Substance: OXYCODONE HYDROCHLORIDE
     Indication: CANCER PAIN
     Dosage: 5 MG, BID (2/DAY)
     Route: 048
     Dates: start: 20100702, end: 20110120
  8. KYTRIL [Concomitant]
     Active Substance: GRANISETRON HYDROCHLORIDE
     Indication: NAUSEA
     Dosage: 2 MG, TID (3/DAY)
     Route: 048
     Dates: start: 20101111, end: 20101115
  9. MAGMITT [Concomitant]
     Active Substance: MAGNESIUM OXIDE
     Indication: CONSTIPATION
     Dosage: 250 MG, TID (3/DAY)
     Route: 048
     Dates: start: 20100702
  10. NAVELBINE [Suspect]
     Active Substance: VINORELBINE TARTRATE
     Indication: SQUAMOUS CELL CARCINOMA OF LUNG
     Dosage: 33 MG ON DAY 1 AND DAY 8
     Route: 042
     Dates: start: 20100729, end: 20100826
  11. NEO-MINOPHAGEN C [Suspect]
     Active Substance: AMMONIUM GLYCYRRHIZATE
     Indication: LIVER DISORDER
     Dosage: 20 ML, QD (1/DAY)
     Route: 042
     Dates: start: 20100722, end: 20100723
  12. GRAN [Suspect]
     Active Substance: FILGRASTIM
     Indication: BONE MARROW FAILURE
     Dosage: 75 ?G UNK
     Route: 058
     Dates: start: 20100811, end: 20100815
  13. GRAN [Suspect]
     Active Substance: FILGRASTIM
     Dosage: 75 ?G UNK
     Route: 058
     Dates: start: 20101020, end: 20101024
  14. CISPLATIN. [Suspect]
     Active Substance: CISPLATIN
     Indication: SQUAMOUS CELL CARCINOMA OF LUNG
     Dosage: 135 MG ONCE IN ONE CYCLE ON DAY 1
     Route: 042
     Dates: start: 20100729, end: 20101108
  15. DEXART [Concomitant]
     Active Substance: DEXAMETHASONE SODIUM PHOSPHATE
     Indication: ALLERGY PROPHYLAXIS
     Dosage: UNK
     Route: 042
     Dates: start: 20100811, end: 20101126

REACTIONS (6)
  - Interstitial lung disease [Fatal]
  - Febrile neutropenia [Unknown]
  - Sepsis [Recovered/Resolved]
  - Pneumonia [Recovered/Resolved]
  - Acute coronary syndrome [Recovered/Resolved]
  - Cardiac failure [Recovered/Resolved]

NARRATIVE: CASE EVENT DATE: 20101124
